FAERS Safety Report 20477483 (Version 1)
Quarter: 2022Q1

REPORT INFORMATION
  Report Type: Report from Study
  Country: DE (occurrence: DE)
  Receive Date: 20220216
  Receipt Date: 20220216
  Transmission Date: 20220423
  Serious: Yes (Hospitalization, Other)
  Sender: FDA-Public Use
  Company Number: DE-ZAMBON-202200157DEU

PATIENT
  Age: 59 Year
  Sex: Female

DRUGS (1)
  1. IBUPROFEN [Suspect]
     Active Substance: IBUPROFEN
     Indication: Urinary tract infection
     Dosage: 400 MILLIGRAM, ONCE A DAY (400 MG, OD)
     Route: 048

REACTIONS (2)
  - Gastrointestinal haemorrhage [Unknown]
  - Off label use [Unknown]
